FAERS Safety Report 4330332-7 (Version None)
Quarter: 2004Q1

REPORT INFORMATION
  Report Type: 
  Country: None (occurrence: None)
  Receive Date: 20040329
  Receipt Date: 20040323
  Transmission Date: 20041129
  Serious: Yes (Other)
  Sender: FDA-Public Use
  Company Number: 2003160915CA

PATIENT
  Age: 21 Year
  Sex: Female
  Weight: 61.2 kg

DRUGS (1)
  1. DEPO-PROVERA [Suspect]
     Indication: CONTRACEPTION
     Dosage: 150 MG/3 MONTHS, INTRAMUSCULAR
     Route: 030
     Dates: start: 20030325, end: 20030325

REACTIONS (1)
  - INJECTION SITE ABSCESS [None]
